FAERS Safety Report 11223122 (Version 2)
Quarter: 2015Q3

REPORT INFORMATION
  Report Type: Spontaneous
  Country: US (occurrence: US)
  Receive Date: 20150626
  Receipt Date: 20150706
  Transmission Date: 20151125
  Serious: Yes (Other)
  Sender: FDA-Public Use
  Company Number: US-ABBVIE-15P-163-1413732-00

PATIENT
  Sex: Male

DRUGS (2)
  1. ANDROGEL [Suspect]
     Active Substance: TESTOSTERONE
     Indication: BLOOD TESTOSTERONE DECREASED
  2. ANDROGEL [Suspect]
     Active Substance: TESTOSTERONE
     Indication: ANDROGEN REPLACEMENT THERAPY
     Route: 065

REACTIONS (8)
  - Transient ischaemic attack [Unknown]
  - Injury [Unknown]
  - Physical disability [Unknown]
  - Emotional distress [Unknown]
  - Cerebrovascular accident [Unknown]
  - Economic problem [Unknown]
  - Diplopia [Unknown]
  - Social problem [Unknown]
